FAERS Safety Report 8479874-3 (Version None)
Quarter: 2012Q2

REPORT INFORMATION
  Report Type: 
  Country: None (occurrence: None)
  Receive Date: 20120619
  Receipt Date: 20120608
  Transmission Date: 20120825
  Serious: Yes (Hospitalization)
  Sender: FDA-Public Use
  Company Number: 2012SP031889

PATIENT
  Age: 52 Year
  Sex: Female

DRUGS (7)
  1. TRANXENE [Concomitant]
  2. PAXIL CR [Concomitant]
  3. LISINOPRIL [Concomitant]
  4. PEG-INTRON [Suspect]
     Indication: HEPATITIS C
     Dosage: 120 MCG;QW
     Dates: start: 20120501
  5. SYNTHROID [Concomitant]
  6. ZOFRAN [Concomitant]
  7. EFFEXOR [Concomitant]

REACTIONS (3)
  - BLOOD PRESSURE DECREASED [None]
  - ASTHENIA [None]
  - DYSPNOEA [None]
